FAERS Safety Report 6509264-1 (Version None)
Quarter: 2009Q4

REPORT INFORMATION
  Report Type: 
  Country: None (occurrence: None)
  Receive Date: 20091222
  Receipt Date: 20091211
  Transmission Date: 20100525
  Serious: Yes (Hospitalization)
  Sender: FDA-Public Use
  Company Number: US-BIOGENIDEC-2009BI041070

PATIENT
  Sex: Female
  Weight: 49 kg

DRUGS (4)
  1. TYSABRI [Suspect]
     Indication: MULTIPLE SCLEROSIS
     Route: 042
     Dates: start: 20090917
  2. LAXATIVE (NOS) [Concomitant]
     Indication: CONSTIPATION
  3. STOOL SOFTENER (NOS) [Concomitant]
     Indication: CONSTIPATION
  4. BLOOD PRESSURE MEDICATION (NOS) [Concomitant]

REACTIONS (4)
  - ASTHENIA [None]
  - CONSTIPATION [None]
  - GAIT DISTURBANCE [None]
  - TEMPERATURE INTOLERANCE [None]
